FAERS Safety Report 6597655-2 (Version None)
Quarter: 2010Q1

REPORT INFORMATION
  Report Type: 
  Country: None (occurrence: None)
  Receive Date: 20100219
  Receipt Date: 20100219
  Transmission Date: 20100710
  Serious: Yes (Life-Threatening)
  Sender: FDA-Public Use
  Company Number: None

PATIENT
  Age: 49 Year
  Sex: Male
  Weight: 99.7913 kg

DRUGS (5)
  1. METHADONE HYDROCHLORIDE [Suspect]
     Indication: PAIN
     Dosage: 210MGS 1 PO
     Route: 048
     Dates: start: 20060501, end: 20100109
  2. MS CONTIN [Suspect]
     Indication: PAIN
     Dosage: 100 MGS 2 PO
     Route: 048
     Dates: start: 20060501, end: 20100109
  3. PERCOCET [Suspect]
  4. KLONOPIN [Suspect]
  5. RITALIN [Suspect]

REACTIONS (4)
  - PAIN [None]
  - PANIC ATTACK [None]
  - THERAPY REGIMEN CHANGED [None]
  - UNEVALUABLE EVENT [None]
